FAERS Safety Report 9705920 (Version 3)
Quarter: 2014Q2

REPORT INFORMATION
  Report Type: Spontaneous
  Country: US (occurrence: US)
  Receive Date: 20131122
  Receipt Date: 20140610
  Transmission Date: 20141212
  Serious: Yes (Hospitalization)
  Sender: FDA-Public Use
  Company Number: US-B.I. PHARMACEUTICALS,INC./RIDGEFIELD-2013-BI-38680BP

PATIENT
  Age: 82 Year
  Sex: Female
  Weight: 90.71 kg

DRUGS (18)
  1. PRADAXA [Suspect]
     Indication: ANTICOAGULANT THERAPY
     Dosage: 300 MG
     Route: 048
     Dates: start: 20110616, end: 20120520
  2. PRADAXA [Suspect]
     Indication: ATRIAL FIBRILLATION
  3. EPLERENONE [Concomitant]
     Indication: HYPERTENSION
     Dosage: 25 MG
     Route: 048
  4. EPLERENONE [Concomitant]
     Indication: OEDEMA
  5. FUROSEMIDE [Concomitant]
     Indication: HYPERTENSION
     Dosage: 20 MG
     Route: 048
     Dates: start: 2009
  6. FUROSEMIDE [Concomitant]
     Indication: OEDEMA
  7. LIPITOR [Concomitant]
     Indication: HYPERLIPIDAEMIA
     Dosage: 80 MG
     Route: 048
     Dates: start: 201106
  8. LOSARTAN [Concomitant]
     Indication: HYPERTENSION
     Dosage: 50 MG
     Route: 048
     Dates: start: 201106
  9. METOPROLOL [Concomitant]
     Indication: HYPERTENSION
     Dosage: 50 MG
     Route: 048
     Dates: start: 2008
  10. METOPROLOL [Concomitant]
     Indication: CORONARY ARTERY DISEASE
  11. METOPROLOL [Concomitant]
     Indication: ATRIAL FIBRILLATION
  12. NITROSTAT [Concomitant]
     Route: 060
     Dates: start: 201106
  13. PRUNELAX [Concomitant]
     Dosage: 1 ANZ
     Route: 048
  14. SENNA SOFT [Concomitant]
     Indication: CONSTIPATION
     Dosage: 1 ANZ
     Route: 048
     Dates: start: 201106
  15. TRAZODONE [Concomitant]
     Indication: INSOMNIA
     Dosage: 150 MG
     Route: 048
     Dates: start: 2011
  16. ZANTAC [Concomitant]
     Dosage: 300 MG
     Route: 048
     Dates: start: 2010
  17. PLAVIX [Concomitant]
     Dosage: 75 MG
     Route: 048
  18. ASPIRIN [Concomitant]
     Dosage: 325 MG
     Route: 048

REACTIONS (3)
  - Gastrointestinal haemorrhage [Unknown]
  - Renal failure acute [Recovered/Resolved]
  - Haemorrhagic anaemia [Unknown]
